FAERS Safety Report 4810080-7 (Version None)
Quarter: 2005Q4

REPORT INFORMATION
  Report Type: 
  Country: None (occurrence: None)
  Receive Date: 20051024
  Receipt Date: 20051024
  Transmission Date: 20060501
  Serious: Yes (Hospitalization, Disabling, Other)
  Sender: FDA-Public Use
  Company Number: None

PATIENT
  Age: 35 Year
  Sex: Female
  Weight: 78.0187 kg

DRUGS (1)
  1. DEPO-MEDROL [Suspect]
     Dosage: SEE IMAGE
     Route: 008
     Dates: start: 20030115, end: 20031001

REACTIONS (6)
  - ARACHNOIDITIS [None]
  - BLADDER DISORDER [None]
  - GASTROINTESTINAL DISORDER [None]
  - MEMORY IMPAIRMENT [None]
  - OSTEONECROSIS [None]
  - POOR PERIPHERAL CIRCULATION [None]
